FAERS Safety Report 22648629 (Version 1)
Quarter: 2023Q2

REPORT INFORMATION
  Report Type: Spontaneous
  Country: CN (occurrence: CN)
  Receive Date: 20230628
  Receipt Date: 20230628
  Transmission Date: 20230721
  Serious: Yes (Other)
  Sender: FDA-Public Use
  Company Number: CN-002147023-NVSC2023CN146145

PATIENT
  Age: 84 Year
  Sex: Male
  Weight: 60 kg

DRUGS (5)
  1. SACUBITRIL\VALSARTAN [Suspect]
     Active Substance: SACUBITRIL\VALSARTAN
     Indication: Vasoconstriction
     Dosage: 100 MG, QD
     Route: 048
     Dates: start: 20230218
  2. SACUBITRIL\VALSARTAN [Suspect]
     Active Substance: SACUBITRIL\VALSARTAN
     Dosage: 100 MG, QD
     Route: 048
     Dates: start: 20230503, end: 20230505
  3. HERBALS\DIAMMONIUM GLYCYRRHIZINATE [Suspect]
     Active Substance: HERBALS\DIAMMONIUM GLYCYRRHIZINATE
     Indication: Antiviral prophylaxis
     Dosage: UNK
     Route: 065
     Dates: start: 20230219
  4. HERBALS\DIAMMONIUM GLYCYRRHIZINATE [Suspect]
     Active Substance: HERBALS\DIAMMONIUM GLYCYRRHIZINATE
     Dosage: 30 ML, QD
     Route: 041
     Dates: start: 20230503, end: 20230505
  5. DEXTROSE [Concomitant]
     Active Substance: DEXTROSE\DEXTROSE MONOHYDRATE
     Indication: Blood electrolytes
     Dosage: 250 ML, QD
     Route: 041
     Dates: start: 20230503, end: 20230505

REACTIONS (6)
  - Renal impairment [Recovering/Resolving]
  - Pruritus [Recovering/Resolving]
  - Phlebitis [Recovering/Resolving]
  - Pain in extremity [Recovered/Resolved]
  - Injection site erythema [Unknown]
  - Product use in unapproved indication [Unknown]

NARRATIVE: CASE EVENT DATE: 20230218
